FAERS Safety Report 20711647 (Version 6)
Quarter: 2022Q3

REPORT INFORMATION
  Report Type: Report from Study
  Country: US (occurrence: US)
  Receive Date: 20220414
  Receipt Date: 20220825
  Transmission Date: 20221026
  Serious: Yes (Other)
  Sender: FDA-Public Use
  Company Number: US-TAKEDA-2022TUS023344

PATIENT
  Sex: Female
  Weight: 91 kg

DRUGS (31)
  1. HUMAN IMMUNOGLOBULIN G [Suspect]
     Active Substance: HUMAN IMMUNOGLOBULIN G
     Indication: Crohn^s disease
     Dosage: 30 GRAM, Q4WEEKS
     Route: 042
     Dates: start: 20220315
  2. CHLORTHALIDONE [Concomitant]
     Active Substance: CHLORTHALIDONE
  3. ACETAMINOPHEN [Concomitant]
     Active Substance: ACETAMINOPHEN
  4. DIPHENHYDRAMINE [Concomitant]
     Active Substance: DIPHENHYDRAMINE
  5. HEPARIN [Concomitant]
     Active Substance: HEPARIN SODIUM
  6. LIDOCAINE [Concomitant]
     Active Substance: LIDOCAINE
  7. SODIUM CHLORIDE [Concomitant]
     Active Substance: SODIUM CHLORIDE
  8. EPINEPHRINE [Concomitant]
     Active Substance: EPINEPHRINE
  9. FOSAMAX [Concomitant]
     Active Substance: ALENDRONATE SODIUM
  10. ZYRTEC [Concomitant]
     Active Substance: CETIRIZINE HYDROCHLORIDE
  11. AZELASTINE [Concomitant]
     Active Substance: AZELASTINE
  12. FLOVENT [Concomitant]
     Active Substance: FLUTICASONE PROPIONATE
  13. FOLIC ACID [Concomitant]
     Active Substance: FOLIC ACID
  14. CARDIZEM [Concomitant]
     Active Substance: DILTIAZEM HYDROCHLORIDE
  15. LEVOTHYROXINE [Concomitant]
     Active Substance: LEVOTHYROXINE
  16. LEUCOVORIN CALCIUM [Concomitant]
     Active Substance: LEUCOVORIN CALCIUM
  17. POTASSIUM CHLORIDE [Concomitant]
     Active Substance: POTASSIUM CHLORIDE
  18. PREDNISONE [Concomitant]
     Active Substance: PREDNISONE
  19. FLUOCINOLONE ACETONIDE [Concomitant]
     Active Substance: FLUOCINOLONE ACETONIDE
  20. MONTELUKAST SODIUM [Concomitant]
     Active Substance: MONTELUKAST SODIUM
  21. RASUVO [Concomitant]
     Active Substance: METHOTREXATE SODIUM
  22. PROAIR HFA [Concomitant]
     Active Substance: ALBUTEROL SULFATE
  23. ERGOCALCIFEROL [Concomitant]
     Active Substance: ERGOCALCIFEROL
  24. CIMZIA [Concomitant]
     Active Substance: CERTOLIZUMAB PEGOL
  25. VITAMIN D3 [Concomitant]
     Active Substance: CHOLECALCIFEROL
  26. VITAMINS [Concomitant]
     Active Substance: VITAMINS
     Route: 065
  27. Lmx [Concomitant]
  28. BIOFREEZE [Concomitant]
     Active Substance: MENTHOL
  29. VOLTAREN ARTHRITIS PAIN [Concomitant]
     Active Substance: DICLOFENAC SODIUM
  30. FLUTICASONE PROPIONATE [Concomitant]
     Active Substance: FLUTICASONE PROPIONATE
  31. XYZAL [Concomitant]
     Active Substance: LEVOCETIRIZINE DIHYDROCHLORIDE

REACTIONS (7)
  - Crohn^s disease [Unknown]
  - Myositis [Unknown]
  - Seasonal allergy [Unknown]
  - Peripheral swelling [Unknown]
  - Pain in extremity [Unknown]
  - Headache [Recovering/Resolving]
  - Sinusitis [Unknown]
